FAERS Safety Report 24717032 (Version 1)
Quarter: 2024Q4

REPORT INFORMATION
  Report Type: Spontaneous
  Country: BE (occurrence: BE)
  Receive Date: 20241210
  Receipt Date: 20241210
  Transmission Date: 20250115
  Serious: Yes (Hospitalization, Other)
  Sender: ALEXION PHARMACEUTICALS
  Company Number: None

PATIENT

DRUGS (2)
  1. ACALABRUTINIB [Suspect]
     Active Substance: ACALABRUTINIB
  2. AVELUMAB [Suspect]
     Active Substance: AVELUMAB

REACTIONS (6)
  - Chest discomfort [Unknown]
  - Dyspnoea [Unknown]
  - Chills [Unknown]
  - Feeling cold [Unknown]
  - Oxygen saturation decreased [Unknown]
  - Cytokine release syndrome [Unknown]
